FAERS Safety Report 8049003-9 (Version None)
Quarter: 2011Q4

REPORT INFORMATION
  Report Type: 
  Country: None (occurrence: None)
  Receive Date: 20111209
  Receipt Date: 20110906
  Transmission Date: 20120403
  Serious: No
  Sender: FDA-Public Use
  Company Number: 2011SP042100

PATIENT
  Age: 41 Year
  Sex: Female

DRUGS (3)
  1. VICTRELIS [Suspect]
     Indication: HEPATITIS C
     Dosage: 800 MG;TID; PO
     Route: 048
     Dates: end: 20110824
  2. RIBASPHERE [Suspect]
     Indication: HEPATITIS C
     Dates: end: 20110824
  3. PEGASYS [Suspect]
     Indication: HEPATITIS C
     Dates: end: 20110824

REACTIONS (3)
  - HEADACHE [None]
  - EYE PAIN [None]
  - EYE HAEMORRHAGE [None]
